FAERS Safety Report 17576784 (Version 1)
Quarter: 2020Q1

REPORT INFORMATION
  Report Type: Other
  Country: US (occurrence: US)
  Receive Date: 20200324
  Receipt Date: 20200324
  Transmission Date: 20200409
  Serious: No
  Sender: FDA-Public Use
  Company Number: US-ACORDA-ACO_163992_2020

PATIENT
  Sex: Male
  Weight: 70.3 kg

DRUGS (4)
  1. INBRIJA [Suspect]
     Active Substance: LEVODOPA
     Indication: PARKINSON^S DISEASE
     Dosage: 84 MILLIGRAM, PRN, NOT TO EXCEED 5 DOSES A DAY
     Dates: start: 202001
  2. INBRIJA [Suspect]
     Active Substance: LEVODOPA
     Indication: ON AND OFF PHENOMENON
  3. RYTARY [Concomitant]
     Active Substance: CARBIDOPA\LEVODOPA
     Dosage: 95 MG 4 TIMES A DAY
     Route: 065
  4. RYTARY [Concomitant]
     Active Substance: CARBIDOPA\LEVODOPA
     Indication: PRODUCT USED FOR UNKNOWN INDICATION
     Dosage: 1800-2000 MG QD
     Route: 048
     Dates: start: 201912

REACTIONS (13)
  - Musculoskeletal stiffness [Recovering/Resolving]
  - Blood pressure abnormal [Unknown]
  - Device issue [Unknown]
  - Pain in extremity [Recovering/Resolving]
  - Feeling abnormal [Unknown]
  - Wrong technique in product usage process [Unknown]
  - Dizziness [Unknown]
  - Musculoskeletal stiffness [Unknown]
  - Coordination abnormal [Unknown]
  - Hypersomnia [Unknown]
  - Drug ineffective [Unknown]
  - Incorrect dose administered [Unknown]
  - Product residue present [Unknown]
